FAERS Safety Report 11926811 (Version 3)
Quarter: 2017Q4

REPORT INFORMATION
  Report Type: Report from Study
  Country: IL (occurrence: IL)
  Receive Date: 20160119
  Receipt Date: 20171027
  Transmission Date: 20180320
  Serious: Yes (Hospitalization)
  Sender: FDA-Public Use
  Company Number: PHHO2016IL000945

PATIENT
  Age: 18 Year
  Sex: Female
  Weight: 54.6 kg

DRUGS (2)
  1. COLCHICINE. [Concomitant]
     Active Substance: COLCHICINE
     Indication: FAMILIAL MEDITERRANEAN FEVER
     Dosage: 1 MG, BID
     Route: 048
     Dates: start: 200111
  2. ACZ885 [Suspect]
     Active Substance: CANAKINUMAB
     Indication: FAMILIAL MEDITERRANEAN FEVER
     Dosage: 150 MG, Q4W
     Route: 058
     Dates: start: 20141005, end: 20151229

REACTIONS (1)
  - Infectious colitis [Recovered/Resolved]

NARRATIVE: CASE EVENT DATE: 20160109
